FAERS Safety Report 6168361-3 (Version None)
Quarter: 2009Q2

REPORT INFORMATION
  Report Type: 
  Country: None (occurrence: None)
  Receive Date: 20090427
  Receipt Date: 20090413
  Transmission Date: 20091009
  Serious: Yes (Other)
  Sender: FDA-Public Use
  Company Number: US-ROCHE-627465

PATIENT
  Sex: Male

DRUGS (2)
  1. ACCUTANE [Suspect]
     Indication: ACNE
     Dosage: FIRST COURSE.
     Route: 048
  2. ACCUTANE [Suspect]
     Dosage: SECOND COURSE.
     Route: 048

REACTIONS (2)
  - ABDOMINAL PAIN [None]
  - BLOOD BILIRUBIN UNCONJUGATED INCREASED [None]
